FAERS Safety Report 16347165 (Version 1)
Quarter: 2019Q2

REPORT INFORMATION
  Report Type: Spontaneous
  Country: US (occurrence: US)
  Receive Date: 20190417
  Receipt Date: 20190417
  Transmission Date: 20190711
  Serious: Yes (Hospitalization)
  Sender: FDA-Public Use
  Company Number: None

PATIENT
  Age: 45 Year
  Sex: Female

DRUGS (4)
  1. CYCLOBENZAPRINE. [Concomitant]
     Active Substance: CYCLOBENZAPRINE
  2. MELOXICAM. [Concomitant]
     Active Substance: MELOXICAM
  3. TRAMADOL. [Concomitant]
     Active Substance: TRAMADOL
  4. ENBREL [Suspect]
     Active Substance: ETANERCEPT
     Indication: PSORIATIC ARTHROPATHY
     Route: 058
     Dates: start: 20180717

REACTIONS (1)
  - Surgery [None]

NARRATIVE: CASE EVENT DATE: 20190410
